FAERS Safety Report 23162712 (Version 1)
Quarter: 2023Q4

REPORT INFORMATION
  Report Type: Spontaneous
  Country: US (occurrence: US)
  Receive Date: 20231109
  Receipt Date: 20231109
  Transmission Date: 20240109
  Serious: No
  Sender: FDA-Public Use
  Company Number: US-SA-SAC20231027000603

PATIENT
  Age: 70 Year
  Sex: Female

DRUGS (1)
  1. GOLD BOND EXTRA STRENGTH LOTION [Suspect]
     Active Substance: DIMETHICONE\MENTHOL
     Dosage: UNK
     Route: 065
     Dates: start: 20230920, end: 20231025

REACTIONS (1)
  - Rash erythematous [Unknown]

NARRATIVE: CASE EVENT DATE: 20230920
